FAERS Safety Report 6530733-2 (Version None)
Quarter: 2010Q1

REPORT INFORMATION
  Report Type: 
  Country: None (occurrence: None)
  Receive Date: 20100108
  Receipt Date: 20081221
  Transmission Date: 20100710
  Serious: No
  Sender: FDA-Public Use
  Company Number: A0761577A

PATIENT
  Sex: Female

DRUGS (3)
  1. LOVAZA [Suspect]
     Indication: DRUG USE FOR UNKNOWN INDICATION
     Route: 048
  2. CRESTOR [Concomitant]
  3. ATENOLOL [Concomitant]

REACTIONS (2)
  - ABASIA [None]
  - RASH [None]
